FAERS Safety Report 8326570-9 (Version None)
Quarter: 2012Q2

REPORT INFORMATION
  Report Type: 
  Country: None (occurrence: None)
  Receive Date: 20120501
  Receipt Date: 20120420
  Transmission Date: 20120825
  Serious: Yes (Hospitalization)
  Sender: FDA-Public Use
  Company Number: US-JNJFOC-20120404025

PATIENT
  Sex: Male
  Weight: 86.2 kg

DRUGS (11)
  1. TACROLIMUS [Concomitant]
  2. CLARITIN [Concomitant]
  3. OMEPRAZOLE [Concomitant]
  4. RIFAXIMIN [Concomitant]
  5. ANTIBIOTICS FOR IBD [Concomitant]
     Indication: INFLAMMATORY BOWEL DISEASE
  6. PROBIOTICS [Concomitant]
  7. COMBIVENT [Concomitant]
  8. SINGULAIR [Concomitant]
  9. IMODIUM [Concomitant]
  10. INFLIXIMAB, RECOMBINANT [Suspect]
     Indication: INFLAMMATORY BOWEL DISEASE
     Route: 042
     Dates: start: 20070324, end: 20071015
  11. LEXAPRO [Concomitant]

REACTIONS (3)
  - DEHYDRATION [None]
  - SYNCOPE [None]
  - CONVERSION DISORDER [None]
